FAERS Safety Report 17173408 (Version 1)
Quarter: 2019Q4

REPORT INFORMATION
  Report Type: Spontaneous
  Country: US (occurrence: US)
  Receive Date: 20191219
  Receipt Date: 20191219
  Transmission Date: 20200122
  Serious: Yes (Hospitalization, Other)
  Sender: FDA-Public Use
  Company Number: US-BRISTOL-MYERS SQUIBB COMPANY-BMS-2019-121752

PATIENT
  Sex: Female

DRUGS (2)
  1. WARFARIN SODIUM. [Suspect]
     Active Substance: WARFARIN SODIUM
     Indication: ATRIAL FIBRILLATION
     Dosage: UNK
     Route: 065
  2. ASA [Suspect]
     Active Substance: ASPIRIN
     Indication: PRODUCT USED FOR UNKNOWN INDICATION
     Dosage: 81 MILLIGRAM, DAILY
     Route: 065

REACTIONS (8)
  - Dyspnoea [Unknown]
  - Uterine haemorrhage [Unknown]
  - Large intestine polyp [Unknown]
  - Chest pain [Unknown]
  - Cerebrovascular accident [Recovered/Resolved]
  - Cardiac failure [Unknown]
  - Back pain [Recovered/Resolved]
  - Musculoskeletal pain [Recovered/Resolved]
